FAERS Safety Report 8795267 (Version 1)
Quarter: 2012Q4

REPORT INFORMATION
  Report Type: 
  Country: US (occurrence: US)
  Receive Date: 20120917
  Receipt Date: 20120917
  Transmission Date: 20130627
  Serious: Yes (Hospitalization)
  Sender: FDA-Public Use
  Company Number: PHEH2012US017991

PATIENT
  Sex: Female

DRUGS (5)
  1. DIOVAN [Suspect]
     Dosage: 160 mg, BID
  2. RANEXA [Concomitant]
  3. NIFEDIPINE [Concomitant]
     Dosage: 30 mg, UNK
  4. CRESTOR [Concomitant]
     Dosage: 5 mg, UNK
  5. SYNTHROID [Concomitant]
     Dosage: 0.05 mg, UNK

REACTIONS (1)
  - Blood sodium decreased [Unknown]
